FAERS Safety Report 6252076-7 (Version None)
Quarter: 2009Q2

REPORT INFORMATION
  Report Type: 
  Country: None (occurrence: None)
  Receive Date: 20090630
  Receipt Date: 20040720
  Transmission Date: 20091009
  Serious: Yes (Hospitalization)
  Sender: FDA-Public Use
  Company Number: US-ROCHE-638900

PATIENT
  Sex: Male

DRUGS (5)
  1. ENFUVIRTIDE [Suspect]
     Route: 065
     Dates: start: 20031215, end: 20050722
  2. TRUVADA [Concomitant]
     Dosage: FREQUENCY REPORTED AS QD
     Dates: start: 20031215, end: 20050722
  3. VIDEX [Concomitant]
     Dosage: FREQUENCY REPORTED AS QD. DRUG NAME REPORTED AS VIDEX EC
     Dates: start: 20031215, end: 20050722
  4. DIFLUCAN [Concomitant]
     Dosage: FREQUENCY REPORTED AS QD
     Dates: start: 20030218, end: 20050722
  5. BACTRIM [Concomitant]
     Dosage: FREQUENCY REPORTED AS QD. DRUG NAME REPORTED AS BACTRIM DS
     Dates: start: 20030101, end: 20050722

REACTIONS (10)
  - DEHYDRATION [None]
  - DIARRHOEA [None]
  - DRUG TOXICITY [None]
  - FOLLICULITIS [None]
  - HEAD INJURY [None]
  - HEPATITIS B [None]
  - MENTAL STATUS CHANGES [None]
  - PANCREATITIS ACUTE [None]
  - THROMBOCYTOPENIA [None]
  - WEIGHT DECREASED [None]
